FAERS Safety Report 8851007 (Version 2)
Quarter: 2012Q4

REPORT INFORMATION
  Report Type: 
  Country: US (occurrence: US)
  Receive Date: 20121019
  Receipt Date: 20121226
  Transmission Date: 20130627
  Serious: Yes (Hospitalization, Other)
  Sender: FDA-Public Use
  Company Number: US-PFIZER INC-2012258815

PATIENT
  Age: 66 Year
  Sex: Male

DRUGS (1)
  1. SUTENT [Suspect]
     Indication: METASTATIC RENAL CELL CARCINOMA
     Dosage: 50 mg, 1x/day
     Route: 048
     Dates: start: 201208

REACTIONS (11)
  - Blood count abnormal [Unknown]
  - Blood creatinine increased [Unknown]
  - Stomatitis [Unknown]
  - Dysgeusia [Unknown]
  - Fatigue [Unknown]
  - Pyrexia [Unknown]
  - Cardiac disorder [Unknown]
  - Urinary tract obstruction [Unknown]
  - Urinary bladder haemorrhage [Unknown]
  - Disease progression [Unknown]
  - Metastatic renal cell carcinoma [Unknown]
